FAERS Safety Report 8372343-0 (Version None)
Quarter: 2012Q2

REPORT INFORMATION
  Report Type: 
  Country: None (occurrence: None)
  Receive Date: 20120521
  Receipt Date: 20120515
  Transmission Date: 20120825
  Serious: No
  Sender: FDA-Public Use
  Company Number: US-PFIZER INC-2012119133

PATIENT
  Sex: Female

DRUGS (2)
  1. CHANTIX [Suspect]
     Dosage: 1.0 MG, UNK
     Dates: start: 20120507, end: 20120514
  2. CHANTIX [Suspect]
     Dosage: 1 MG, UNK
     Dates: start: 20120515

REACTIONS (2)
  - DIARRHOEA [None]
  - VOMITING [None]
